FAERS Safety Report 7458062-3 (Version None)
Quarter: 2011Q2

REPORT INFORMATION
  Report Type: 
  Country: None (occurrence: None)
  Receive Date: 20110504
  Receipt Date: 20110429
  Transmission Date: 20111010
  Serious: Yes (Death)
  Sender: FDA-Public Use
  Company Number: FR-PFIZER INC-2011092309

PATIENT
  Age: 47 Year
  Sex: Male

DRUGS (4)
  1. SUTENT [Suspect]
     Dosage: 37.5 MG, 1X/DAY
     Route: 048
     Dates: start: 20100914
  2. LYRICA [Suspect]
     Dosage: 50 MG, 1X/DAY
     Route: 048
  3. DURAGESIC-100 [Suspect]
     Dosage: 1 DF / 72 HOURS
     Route: 062
  4. ZOMETA [Suspect]
     Dosage: 4 MG, SINGLE
     Route: 042
     Dates: start: 20110318, end: 20110318

REACTIONS (1)
  - CEREBRAL HAEMORRHAGE [None]
